FAERS Safety Report 12366147 (Version 1)
Quarter: 2016Q2

REPORT INFORMATION
  Report Type: Spontaneous
  Country: US (occurrence: US)
  Receive Date: 20160513
  Receipt Date: 20160513
  Transmission Date: 20160815
  Serious: Yes (Other)
  Sender: FDA-Public Use
  Company Number: US-TEIKOKU PHARMA USA-TPU2016-00262

PATIENT
  Age: 65 Year
  Sex: Female
  Weight: 59.02 kg

DRUGS (7)
  1. LIDODERM [Suspect]
     Active Substance: LIDOCAINE
     Indication: BACK PAIN
     Route: 061
  2. TEMAZEPAM. [Concomitant]
     Active Substance: TEMAZEPAM
     Indication: INSOMNIA
     Route: 048
  3. FENTANYL. [Suspect]
     Active Substance: FENTANYL
     Indication: FIBROMYALGIA
     Route: 061
     Dates: start: 20160303, end: 20160313
  4. DILTIAZEM [Concomitant]
     Active Substance: DILTIAZEM
     Indication: CARDIAC DISORDER
     Route: 048
     Dates: start: 20160222
  5. FENTANYL. [Suspect]
     Active Substance: FENTANYL
     Indication: BACK PAIN
  6. FENTANYL. [Suspect]
     Active Substance: FENTANYL
     Indication: NECK PAIN
  7. ALPRAZOLAM. [Concomitant]
     Active Substance: ALPRAZOLAM
     Indication: INSOMNIA
     Route: 048

REACTIONS (11)
  - Facial bones fracture [Not Recovered/Not Resolved]
  - Contusion [Unknown]
  - Neck surgery [Recovered/Resolved]
  - Loss of consciousness [Recovered/Resolved]
  - Epistaxis [Unknown]
  - Drug effect decreased [Not Recovered/Not Resolved]
  - Expired product administered [Not Recovered/Not Resolved]
  - Chapped lips [Unknown]
  - Fall [Recovered/Resolved]
  - Haematoma [Recovered/Resolved]
  - Eye contusion [Recovered/Resolved]

NARRATIVE: CASE EVENT DATE: 201509
